FAERS Safety Report 19642059 (Version 3)
Quarter: 2021Q4

REPORT INFORMATION
  Report Type: Spontaneous
  Country: US (occurrence: US)
  Receive Date: 20210730
  Receipt Date: 20211119
  Transmission Date: 20220303
  Serious: Yes (Hospitalization, Other)
  Sender: FDA-Public Use
  Company Number: US-RADIUS HEALTH INC.-2021US003208

PATIENT
  Sex: Female

DRUGS (15)
  1. TYMLOS [Suspect]
     Active Substance: ABALOPARATIDE
     Indication: Osteoporosis
     Dosage: 2 CLICKS, 20 MILLIGRAM, QD
     Route: 058
     Dates: start: 202106
  2. TYMLOS [Suspect]
     Active Substance: ABALOPARATIDE
     Dosage: 1/4 DOSE, QOD AND SLOWLY TITRATED UP
     Route: 058
     Dates: end: 20210703
  3. TYMLOS [Suspect]
     Active Substance: ABALOPARATIDE
     Dosage: 1/2 DOSE, QOD
     Route: 058
     Dates: end: 20210721
  4. TYMLOS [Suspect]
     Active Substance: ABALOPARATIDE
     Dosage: 80 MCG QD (8 CLICKS)
     Route: 058
     Dates: start: 20210704
  5. TYMLOS [Suspect]
     Active Substance: ABALOPARATIDE
     Dosage: 1/2 DOSE, QD
     Route: 058
  6. TYMLOS [Suspect]
     Active Substance: ABALOPARATIDE
     Dosage: 6 CLICKS MOST DAYS, 60 MICROGRAM, QD,
     Route: 058
     Dates: start: 20211001
  7. TYMLOS [Suspect]
     Active Substance: ABALOPARATIDE
     Dosage: 7 CLICKS SOME DAYS,70 MICROGRAM, QD
     Route: 058
  8. ALBUTEROL [Concomitant]
     Active Substance: ALBUTEROL
     Indication: Product used for unknown indication
     Dosage: PUMP INHALER
  9. BACLOFEN [Concomitant]
     Active Substance: BACLOFEN
     Indication: Product used for unknown indication
  10. FLOVENT [Concomitant]
     Active Substance: FLUTICASONE PROPIONATE
     Indication: Product used for unknown indication
     Dosage: UNK
  11. B COMPLETE [VITAMIN B COMPLEX] [Concomitant]
     Indication: Product used for unknown indication
  12. KLONOPIN [Concomitant]
     Active Substance: CLONAZEPAM
     Indication: Product used for unknown indication
  13. PEPCID [Concomitant]
     Active Substance: FAMOTIDINE
     Indication: Product used for unknown indication
  14. ANTIVERT [Concomitant]
     Active Substance: MECLIZINE HYDROCHLORIDE
     Indication: Product used for unknown indication
  15. CARDIZEM [Concomitant]
     Active Substance: DILTIAZEM HYDROCHLORIDE
     Indication: Product used for unknown indication
     Dosage: IMMEDIATE RELEASE

REACTIONS (11)
  - Atrial fibrillation [Recovered/Resolved]
  - Tachycardia [Unknown]
  - Blood pressure decreased [Recovered/Resolved]
  - Lymphadenopathy [Recovered/Resolved]
  - Oropharyngeal pain [Recovered/Resolved]
  - Chest discomfort [Recovered/Resolved]
  - Dizziness [Recovered/Resolved]
  - Headache [Recovered/Resolved]
  - Palpitations [Recovered/Resolved]
  - Dyspnoea [Recovered/Resolved]
  - Off label use [Not Recovered/Not Resolved]

NARRATIVE: CASE EVENT DATE: 20210101
